FAERS Safety Report 12204759 (Version 6)
Quarter: 2016Q2

REPORT INFORMATION
  Report Type: Report from Study
  Country: US (occurrence: US)
  Receive Date: 20160323
  Receipt Date: 20160609
  Transmission Date: 20160815
  Serious: Yes (Hospitalization, Other)
  Sender: FDA-Public Use
  Company Number: US-ALEXION PHARMACEUTICALS INC-A201601902

PATIENT
  Sex: Female

DRUGS (1)
  1. SOLIRIS [Suspect]
     Active Substance: ECULIZUMAB
     Indication: HAEMOLYTIC URAEMIC SYNDROME
     Dosage: UNK
     Route: 042

REACTIONS (11)
  - Aortic valve disease [Unknown]
  - Stress cardiomyopathy [Unknown]
  - Bacteraemia [Unknown]
  - Haemolytic uraemic syndrome [Unknown]
  - Blood creatinine abnormal [Unknown]
  - Anaemia [Unknown]
  - Chest pain [Unknown]
  - Crohn^s disease [Unknown]
  - Cardiovascular disorder [Unknown]
  - Coronary artery disease [Unknown]
  - Endocarditis [Unknown]

NARRATIVE: CASE EVENT DATE: 201603
